FAERS Safety Report 5810423-1 (Version None)
Quarter: 2008Q3

REPORT INFORMATION
  Report Type: 
  Country: None (occurrence: None)
  Receive Date: 20080709
  Receipt Date: 20080630
  Transmission Date: 20090109
  Serious: No
  Sender: FDA-Public Use
  Company Number: 2008-179956-NL

PATIENT
  Age: 61 Year

DRUGS (1)
  1. MIRTAZAPINE [Suspect]
     Indication: INSOMNIA
     Dosage: 15 MG QD
     Dates: start: 20080527, end: 20080603

REACTIONS (1)
  - JAUNDICE [None]
